FAERS Safety Report 9901434 (Version 3)
Quarter: 2014Q1

REPORT INFORMATION
  Report Type: Spontaneous
  Country: GB (occurrence: GB)
  Receive Date: 20140217
  Receipt Date: 20140324
  Transmission Date: 20141002
  Serious: Yes (Hospitalization, Other)
  Sender: FDA-Public Use
  Company Number: GB-NOVOPROD-397197

PATIENT
  Age: 74 Year
  Sex: Female
  Weight: 60 kg

DRUGS (11)
  1. NOVORAPID FLEXPEN [Suspect]
     Indication: TYPE 2 DIABETES MELLITUS
     Dosage: 6 U, TID ( 8AM / 12PM / 8PM )
     Route: 065
  2. NOVORAPID FLEXPEN [Suspect]
     Dosage: 12 U, QD  ( 5 / 3 / 4 )
     Route: 065
  3. NOVORAPID FLEXPEN [Suspect]
     Dosage: UNK ( 4 UNITS )
     Route: 065
  4. NOVORAPID FLEXPEN [Suspect]
     Dosage: 18 U, QD (6U AT 8:00, 12:00, 20:00)
     Route: 065
     Dates: start: 20140103
  5. LEVEMIR PENFILL [Suspect]
     Indication: TYPE 2 DIABETES MELLITUS
     Dosage: 10 U, QD (4 U AT 8AM AND 6 U AT 8PM))
     Route: 065
     Dates: start: 2006
  6. LEVEMIR PENFILL [Suspect]
     Dosage: 4 U, BID
     Route: 065
  7. LEVEMIR PENFILL [Suspect]
     Dosage: 10 U, QD (4 U AT 8:00 AND 6 U AT 20:00 )
     Route: 065
     Dates: start: 20140103
  8. GLUCOPHAGE [Concomitant]
     Indication: TYPE 2 DIABETES MELLITUS
     Dosage: 1000 MG, BID
     Route: 065
  9. RAMIPRIL [Concomitant]
     Indication: PRODUCT USED FOR UNKNOWN INDICATION
     Dosage: 5 MG, QD
     Route: 065
  10. ASPIRIN [Concomitant]
     Indication: PRODUCT USED FOR UNKNOWN INDICATION
     Dosage: 75 MG, QD
     Route: 065
  11. MOVICOL                            /01625101/ [Concomitant]
     Indication: CONSTIPATION
     Dosage: 1 SACHET
     Route: 065
     Dates: start: 20140102

REACTIONS (9)
  - Sepsis [Recovered/Resolved]
  - Diabetic ketoacidosis [Recovered/Resolved]
  - Malaise [Unknown]
  - Hypoglycaemia [Recovered/Resolved]
  - Hypoglycaemia [Recovered/Resolved]
  - Drug dose omission [Recovered/Resolved]
  - Drug dose omission [Recovered/Resolved]
  - Diabetes mellitus inadequate control [Unknown]
  - Blood glucose increased [Recovered/Resolved]
